FAERS Safety Report 15023356 (Version 4)
Quarter: 2019Q1

REPORT INFORMATION
  Report Type: Report from Study
  Country: FR (occurrence: FR)
  Receive Date: 20180618
  Receipt Date: 20190210
  Transmission Date: 20190417
  Serious: Yes (Death, Life-Threatening, Hospitalization)
  Sender: FDA-Public Use
  Company Number: PHHO2018FR007317

PATIENT
  Age: 68 Year
  Sex: Female
  Weight: 52 kg

DRUGS (3)
  1. NO TREATMENT RECEIVED [Suspect]
     Active Substance: UNSPECIFIED INGREDIENT
     Indication: ACUTE GRAFT VERSUS HOST DISEASE
     Dosage: NO TREATMENT
     Route: 065
  2. JAKAVI [Suspect]
     Active Substance: RUXOLITINIB
     Indication: ACUTE GRAFT VERSUS HOST DISEASE
     Dosage: 10 MG, BID
     Route: 048
     Dates: start: 20171124, end: 20180521
  3. PREDNISONE. [Suspect]
     Active Substance: PREDNISONE
     Indication: ACUTE GRAFT VERSUS HOST DISEASE
     Dosage: 20 MG, QD
     Route: 048
     Dates: start: 20171203, end: 20180521

REACTIONS (1)
  - Sepsis [Fatal]

NARRATIVE: CASE EVENT DATE: 20180521
